FAERS Safety Report 25529126 (Version 1)
Quarter: 2025Q3

REPORT INFORMATION
  Report Type: Report from Study
  Country: SG (occurrence: SG)
  Receive Date: 20250708
  Receipt Date: 20250708
  Transmission Date: 20251020
  Serious: Yes (Other)
  Sender: MYLAN
  Company Number: SG-MYLANLABS-2025M1056864

PATIENT
  Sex: Male

DRUGS (8)
  1. VANCOMYCIN [Suspect]
     Active Substance: VANCOMYCIN
     Indication: Pyelonephritis
  2. VANCOMYCIN [Suspect]
     Active Substance: VANCOMYCIN
     Route: 042
  3. VANCOMYCIN [Suspect]
     Active Substance: VANCOMYCIN
     Route: 042
  4. VANCOMYCIN [Suspect]
     Active Substance: VANCOMYCIN
  5. AZACTAM [Suspect]
     Active Substance: AZTREONAM
     Indication: Antibiotic therapy
  6. AZACTAM [Suspect]
     Active Substance: AZTREONAM
     Route: 042
  7. AZACTAM [Suspect]
     Active Substance: AZTREONAM
     Route: 042
  8. AZACTAM [Suspect]
     Active Substance: AZTREONAM

REACTIONS (1)
  - Liver injury [Recovering/Resolving]
